FAERS Safety Report 8910295 (Version 1)
Quarter: 2012Q4

REPORT INFORMATION
  Report Type: 
  Country: US (occurrence: US)
  Receive Date: 20121114
  Receipt Date: 20121114
  Transmission Date: 20130627
  Serious: Yes (Other)
  Sender: FDA-Public Use
  Company Number: US-COVIDIEN/TYCO HEALTHCARE/MALLINCKRODT-T201203867

PATIENT
  Age: 36 Year
  Sex: Male

DRUGS (7)
  1. FENTANYL TRANSDERMAL SYSTEM [Suspect]
     Indication: PAIN
     Dosage: 50 ug/hr, q 3 days
     Dates: end: 20121026
  2. BACLOFEN [Concomitant]
     Indication: MUSCLE SPASTICITY
     Dosage: 20 mg, qid
  3. DIAZEPAM [Concomitant]
     Indication: ANXIETY
     Dosage: 5 mg, prn
  4. CLONAZEPAM [Concomitant]
     Indication: ANXIETY
     Dosage: 1 mg q am, 2 mg q hs
  5. CYMBALTA [Concomitant]
     Indication: DEPRESSION
     Dosage: 60 mg, qd
  6. MIRTAZAPINE [Concomitant]
     Indication: DEPRESSION
     Dosage: 30 mg, qhs
  7. WARFARIN [Concomitant]
     Indication: PROPHYLAXIS
     Dosage: 2 mg, qd

REACTIONS (4)
  - Negative thoughts [Recovered/Resolved]
  - Mobility decreased [Not Recovered/Not Resolved]
  - Pain [Not Recovered/Not Resolved]
  - Withdrawal syndrome [Recovered/Resolved]
